FAERS Safety Report 4612069-X (Version None)
Quarter: 2005Q2

REPORT INFORMATION
  Report Type: 
  Country: None (occurrence: None)
  Receive Date: 20050308
  Receipt Date: 20041230
  Transmission Date: 20051028
  Serious: Yes (Other)
  Sender: FDA-Public Use
  Company Number: 2004UW26306

PATIENT
  Age: 68 Year
  Sex: Male
  Weight: 81.646 kg

DRUGS (7)
  1. CRESTOR [Suspect]
     Indication: BLOOD CHOLESTEROL INCREASED
     Dosage: 10 MG QD PO
     Route: 048
  2. CRESTOR [Suspect]
     Indication: BLOOD CHOLESTEROL INCREASED
     Dosage: 10 MG QOD PO
     Route: 048
  3. TOPROL-XL [Concomitant]
  4. PLAVIX [Concomitant]
  5. ACETYL SALICYLIC ACID USP BAT [Concomitant]
  6. GLUCOSAMINE [Concomitant]
  7. CHONDROITIN [Concomitant]

REACTIONS (2)
  - MYALGIA [None]
  - WEIGHT DECREASED [None]
